FAERS Safety Report 5330417-2 (Version None)
Quarter: 2007Q2

REPORT INFORMATION
  Report Type: 
  Country: None (occurrence: None)
  Receive Date: 20070515
  Receipt Date: 20070507
  Transmission Date: 20071010
  Serious: Yes (Hospitalization)
  Sender: FDA-Public Use
  Company Number: UKO07000446

PATIENT
  Age: 62 Year
  Sex: 0

DRUGS (1)
  1. METAMUCIL-2 [Suspect]
     Dosage: 1-3 SACHETS, ORAL
     Route: 048
     Dates: start: 20050501, end: 20070401

REACTIONS (1)
  - ARRHYTHMIA [None]
